FAERS Safety Report 8872569 (Version 1)
Quarter: 2012Q4

REPORT INFORMATION
  Report Type: Report from Study
  Country: IT (occurrence: IT)
  Receive Date: 20121030
  Receipt Date: 20121030
  Transmission Date: 20130627
  Serious: Yes (Death, Other)
  Sender: FDA-Public Use
  Company Number: IT-ROCHE-1119058

PATIENT
  Age: 70 Year
  Sex: Male

DRUGS (3)
  1. VEMURAFENIB [Suspect]
     Indication: METASTATIC MALIGNANT MELANOMA
     Route: 048
     Dates: start: 20120724
  2. PREDNISONE [Concomitant]
     Indication: PAIN
     Route: 065
  3. FUROSEMIDE [Concomitant]
     Indication: POLYURIA
     Route: 048

REACTIONS (2)
  - Rash [Recovering/Resolving]
  - Sepsis [Fatal]
